FAERS Safety Report 24800889 (Version 1)
Quarter: 2025Q1

REPORT INFORMATION
  Report Type: Spontaneous
  Country: FR (occurrence: FR)
  Receive Date: 20250102
  Receipt Date: 20250102
  Transmission Date: 20250409
  Serious: Yes (Life-Threatening, Hospitalization)
  Sender: FRESENIUS KABI
  Company Number: None

PATIENT
  Age: 65 Year
  Sex: Male
  Weight: 75 kg

DRUGS (8)
  1. PROPOFOL [Suspect]
     Active Substance: PROPOFOL
     Indication: Hernia repair
     Route: 042
     Dates: start: 20241204, end: 20241204
  2. XYLOCAINE [Suspect]
     Active Substance: LIDOCAINE HYDROCHLORIDE
     Indication: Hernia repair
     Route: 042
     Dates: start: 20241204, end: 20241204
  3. KETAMINE [Suspect]
     Active Substance: KETAMINE
     Indication: Hernia repair
     Route: 042
     Dates: start: 20241204, end: 20241204
  4. SUFENTANIL [Suspect]
     Active Substance: SUFENTANIL
     Indication: Hernia repair
     Route: 042
     Dates: start: 20241204, end: 20241204
  5. ROCURONIUM BROMIDE [Suspect]
     Active Substance: ROCURONIUM BROMIDE
     Indication: Hernia repair
     Route: 042
     Dates: start: 20241204, end: 20241204
  6. CEFAZOLIN SODIUM [Suspect]
     Active Substance: CEFAZOLIN SODIUM
     Indication: Infection prophylaxis
     Route: 042
     Dates: start: 20241204, end: 20241204
  7. DEXAMETHASONE [Suspect]
     Active Substance: DEXAMETHASONE
     Indication: Hernia repair
     Route: 042
     Dates: start: 20241204, end: 20241204
  8. AMLODIPINE [Concomitant]
     Active Substance: AMLODIPINE BESYLATE
     Indication: Hypertension
     Route: 048

REACTIONS (1)
  - Anaphylactic shock [Recovered/Resolved]

NARRATIVE: CASE EVENT DATE: 20241204
